FAERS Safety Report 6868035-7 (Version None)
Quarter: 2010Q3

REPORT INFORMATION
  Report Type: 
  Country: None (occurrence: None)
  Receive Date: 20100722
  Receipt Date: 20080518
  Transmission Date: 20110219
  Serious: No
  Sender: FDA-Public Use
  Company Number: US-PFIZER INC-2008042241

PATIENT
  Sex: Female
  Weight: 57.727 kg

DRUGS (4)
  1. CHANTIX [Suspect]
     Indication: SMOKING CESSATION THERAPY
     Route: 048
     Dates: start: 20071201
  2. PERCOCET [Concomitant]
     Indication: FIBROMYALGIA
     Route: 048
     Dates: start: 20080201
  3. XANAX [Concomitant]
     Route: 048
  4. MS CONTIN [Concomitant]
     Route: 048

REACTIONS (1)
  - NAUSEA [None]
